FAERS Safety Report 7683556-5 (Version None)
Quarter: 2011Q3

REPORT INFORMATION
  Report Type: 
  Country: None (occurrence: None)
  Receive Date: 20110815
  Receipt Date: 20110803
  Transmission Date: 20111222
  Serious: Yes (Hospitalization)
  Sender: FDA-Public Use
  Company Number: JP-JNJFOC-20100502837

PATIENT
  Sex: Male
  Weight: 58 kg

DRUGS (18)
  1. REMICADE [Suspect]
     Indication: RHEUMATOID ARTHRITIS
     Route: 042
     Dates: start: 20100428
  2. RHEUMATREX [Suspect]
     Indication: RHEUMATOID ARTHRITIS
     Route: 048
     Dates: start: 20100219
  3. SULFAMETHOXAZOLE [Concomitant]
     Route: 048
     Dates: start: 20100506, end: 20100506
  4. PREDNISOLONE [Concomitant]
     Route: 048
     Dates: start: 20100930, end: 20101014
  5. AZULFIDINE [Concomitant]
     Route: 048
     Dates: start: 20091106, end: 20100107
  6. ZOSYN [Concomitant]
     Route: 042
     Dates: start: 20100507, end: 20100507
  7. PREDNISOLONE [Concomitant]
     Route: 048
     Dates: start: 20100521, end: 20100929
  8. RHEUMATREX [Suspect]
     Route: 048
     Dates: start: 20100108, end: 20100204
  9. AZULFIDINE [Concomitant]
     Route: 048
     Dates: start: 20091023, end: 20091106
  10. ZOSYN [Concomitant]
     Route: 042
     Dates: start: 20100508, end: 20100514
  11. PREDNISOLONE [Suspect]
     Route: 048
     Dates: start: 20100122, end: 20100304
  12. RHEUMATREX [Suspect]
     Route: 048
     Dates: start: 20100205, end: 20100218
  13. PREDNISOLONE [Suspect]
     Indication: RHEUMATOID ARTHRITIS
     Route: 048
     Dates: start: 20100305, end: 20100520
  14. PAZUCROSS [Concomitant]
     Route: 042
     Dates: start: 20100504, end: 20100507
  15. PREDNISOLONE [Suspect]
     Route: 048
     Dates: start: 20091225, end: 20100121
  16. SULFAMETHOXAZOLE [Concomitant]
     Route: 048
     Dates: start: 20100507
  17. PREDNISOLONE [Suspect]
     Route: 048
     Dates: start: 20091211, end: 20091225
  18. PREDNISOLONE [Suspect]
     Route: 048
     Dates: start: 20091009, end: 20091210

REACTIONS (1)
  - NOCARDIOSIS [None]
